FAERS Safety Report 6689235-5 (Version None)
Quarter: 2010Q2

REPORT INFORMATION
  Report Type: 
  Country: None (occurrence: None)
  Receive Date: 20100420
  Receipt Date: 20100408
  Transmission Date: 20101027
  Serious: Yes (Hospitalization)
  Sender: FDA-Public Use
  Company Number: DK-GENENTECH-299614

PATIENT
  Sex: Female
  Weight: 63 kg

DRUGS (6)
  1. MABTHERA [Suspect]
     Indication: B-CELL LYMPHOMA REFRACTORY
     Dosage: 700 MG, 3/WEEK
     Route: 065
     Dates: start: 20040928, end: 20041128
  2. MABTHERA [Suspect]
     Dosage: 700 MG, 1/WEEK
     Route: 065
     Dates: start: 20080304, end: 20080318
  3. CHEMOTHERAPY [Concomitant]
     Indication: B-CELL LYMPHOMA REFRACTORY
     Dosage: UNK UNK, UNKNOWN
     Route: 065
  4. PREDNISOLONE [Concomitant]
     Indication: HAEMOLYTIC ANAEMIA
     Dosage: UNK
     Route: 048
     Dates: start: 20080304
  5. CYCLOPHOSPHAMIDE [Concomitant]
     Indication: HAEMOLYTIC ANAEMIA
     Dosage: 50 UNK, CONTINUOUS
     Route: 048
     Dates: start: 20081014
  6. OCTAGAM [Concomitant]
     Indication: HYPOGAMMAGLOBULINAEMIA
     Dosage: 30 G, 4/WEEK
     Route: 042
     Dates: start: 20080430

REACTIONS (2)
  - JC VIRUS INFECTION [None]
  - PROGRESSIVE MULTIFOCAL LEUKOENCEPHALOPATHY [None]
